FAERS Safety Report 20382222 (Version 1)
Quarter: 2022Q1

REPORT INFORMATION
  Report Type: Spontaneous
  Country: US (occurrence: None)
  Receive Date: 20220127
  Receipt Date: 20220127
  Transmission Date: 20220423
  Serious: Yes (Hospitalization)
  Sender: FDA-Public Use
  Company Number: None

PATIENT
  Age: 45 Year
  Sex: Male
  Weight: 93.9 kg

DRUGS (1)
  1. DULOXETINE HYDROCHLORIDE [Suspect]
     Active Substance: DULOXETINE HYDROCHLORIDE
     Dates: end: 20220115

REACTIONS (4)
  - Dizziness [None]
  - Dizziness [None]
  - Presyncope [None]
  - Sinus tachycardia [None]

NARRATIVE: CASE EVENT DATE: 20220115
